FAERS Safety Report 7861739-9 (Version None)
Quarter: 2011Q4

REPORT INFORMATION
  Report Type: 
  Country: None (occurrence: None)
  Receive Date: 20111027
  Receipt Date: 20111019
  Transmission Date: 20120403
  Serious: Yes (Hospitalization)
  Sender: FDA-Public Use
  Company Number: US-MPIJNJ-2011-04996

PATIENT
  Age: 59 Year
  Sex: Female
  Weight: 78.912 kg

DRUGS (1)
  1. VELCADE [Suspect]
     Indication: MULTIPLE MYELOMA
     Dosage: 2 MG, CYCLIC
     Route: 040
     Dates: start: 20100908, end: 20110407

REACTIONS (2)
  - HERPES ZOSTER [None]
  - IIIRD NERVE PARALYSIS [None]
